FAERS Safety Report 18623968 (Version 2)
Quarter: 2020Q4

REPORT INFORMATION
  Report Type: Spontaneous
  Country: CN (occurrence: CN)
  Receive Date: 20201216
  Receipt Date: 20201224
  Transmission Date: 20210114
  Serious: Yes (Hospitalization, Other)
  Sender: FDA-Public Use
  Company Number: CN-ASTRAZENECA-2020SF63867

PATIENT
  Age: 73 Year
  Sex: Male

DRUGS (2)
  1. TAGRISSO [Suspect]
     Active Substance: OSIMERTINIB
     Indication: LUNG NEOPLASM MALIGNANT
     Dosage: 1 TABLET EVERY TIME
     Route: 048
  2. TAGRISSO [Suspect]
     Active Substance: OSIMERTINIB
     Indication: LUNG NEOPLASM MALIGNANT
     Dosage: ONE AND A HALF TABLETS
     Route: 048
     Dates: start: 2020

REACTIONS (8)
  - Immune system disorder [Unknown]
  - Productive cough [Unknown]
  - General physical health deterioration [Unknown]
  - Inflammation [Unknown]
  - Therapeutic product effect decreased [Unknown]
  - Haemoptysis [Unknown]
  - Drug resistance [Unknown]
  - Angiopathy [Unknown]
